FAERS Safety Report 8603404-6 (Version None)
Quarter: 2012Q3

REPORT INFORMATION
  Report Type: 
  Country: None (occurrence: None)
  Receive Date: 20120817
  Receipt Date: 20120813
  Transmission Date: 20120928
  Serious: No
  Sender: FDA-Public Use
  Company Number: US-PFIZER INC-2012074505

PATIENT
  Sex: Female

DRUGS (1)
  1. CELEBREX [Suspect]
     Dosage: 200 MG, UNK

REACTIONS (2)
  - NERVE COMPRESSION [None]
  - PAIN [None]
